FAERS Safety Report 12009323 (Version 1)
Quarter: 2016Q1

REPORT INFORMATION
  Report Type: Spontaneous
  Country: US (occurrence: None)
  Receive Date: 20160204
  Receipt Date: 20160204
  Transmission Date: 20160526
  Serious: Yes (Other)
  Sender: FDA-Public Use
  Company Number: None

PATIENT
  Age: 57 Year
  Sex: Female

DRUGS (7)
  1. SENSODYNE FRESH MINT [Suspect]
     Active Substance: POTASSIUM NITRATE\SODIUM FLUORIDE
     Indication: SENSITIVITY OF TEETH
     Dosage: 4 OZ TUBES, 2/X DAY, BRUSH W/LITTLE ON ELECTRIC BRUSH
     Dates: start: 20160103, end: 20160110
  2. VITAMIN E [Concomitant]
     Active Substance: .ALPHA.-TOCOPHEROL
  3. RESTASIS [Concomitant]
     Active Substance: CYCLOSPORINE
  4. CLONAZEPAM. [Concomitant]
     Active Substance: CLONAZEPAM
  5. AMIYRA [Concomitant]
  6. COPAXONE [Concomitant]
     Active Substance: GLATIRAMER ACETATE
  7. MELIZINE [Concomitant]

REACTIONS (3)
  - Sensitivity of teeth [None]
  - Oral pain [None]
  - Product quality issue [None]

NARRATIVE: CASE EVENT DATE: 20160108
